FAERS Safety Report 11543396 (Version 2)
Quarter: 2016Q2

REPORT INFORMATION
  Report Type: Spontaneous
  Country: NO (occurrence: NO)
  Receive Date: 20150923
  Receipt Date: 20160503
  Transmission Date: 20160815
  Serious: Yes (Other)
  Sender: FDA-Public Use
  Company Number: NO-PFIZER INC-2015316653

PATIENT
  Age: 17 Year
  Sex: Female

DRUGS (1)
  1. LOETTE-28 [Suspect]
     Active Substance: ETHINYL ESTRADIOL\LEVONORGESTREL
     Indication: CONTRACEPTION
     Dosage: UNK
     Dates: start: 20070901, end: 20140212

REACTIONS (9)
  - Irritability [Unknown]
  - Obsessive thoughts [Recovering/Resolving]
  - Anxiety disorder [Unknown]
  - Compulsions [Unknown]
  - Concussion [Unknown]
  - Fatigue [Unknown]
  - Depression [Recovering/Resolving]
  - Activities of daily living impaired [Unknown]
  - Somnolence [Unknown]

NARRATIVE: CASE EVENT DATE: 200802
